FAERS Safety Report 8795702 (Version 1)
Quarter: 2012Q4

REPORT INFORMATION
  Report Type: Report from Study
  Country: IN (occurrence: IN)
  Receive Date: 20120919
  Receipt Date: 20120919
  Transmission Date: 20130627
  Serious: Yes (Death, Life-Threatening, Hospitalization)
  Sender: FDA-Public Use
  Company Number: IN-BAYER-2012-096231

PATIENT
  Age: 8 Year
  Sex: Female

DRUGS (2)
  1. NAPROXEN [Suspect]
     Indication: JUVENILE ARTHRITIS
  2. ANTIMALARIALS [Concomitant]

REACTIONS (3)
  - Histiocytosis haematophagic [Fatal]
  - Shock [Fatal]
  - Pulmonary haemorrhage [Fatal]
